FAERS Safety Report 20895668 (Version 1)
Quarter: 2022Q2

REPORT INFORMATION
  Report Type: Spontaneous
  Country: GB (occurrence: GB)
  Receive Date: 20220531
  Receipt Date: 20220531
  Transmission Date: 20220721
  Serious: Yes (Other)
  Sender: FDA-Public Use
  Company Number: GB-ENDO PHARMACEUTICALS INC-2022-003344

PATIENT
  Age: 74 Year
  Sex: Male

DRUGS (4)
  1. EDEX [Suspect]
     Active Substance: ALPROSTADIL
     Indication: Erectile dysfunction
     Dosage: 40 UG, UNKNOWN (ON AFTERNOON OF DAY ONE)
     Route: 017
  2. EDEX [Suspect]
     Active Substance: ALPROSTADIL
     Indication: Erectile dysfunction
     Dosage: 40 UG, UNKNOWN (ON AFTERNOON OF DAY ONE)
     Route: 017
  3. EDEX [Suspect]
     Active Substance: ALPROSTADIL
     Indication: Erectile dysfunction
     Dosage: 40 UG, UNKNOWN (ON AFTERNOON OF DAY ONE)
     Route: 017
  4. EDEX [Suspect]
     Active Substance: ALPROSTADIL
     Indication: Erectile dysfunction
     Dosage: 40 UG, UNKNOWN (ON AFTERNOON OF DAY ONE)
     Route: 017

REACTIONS (4)
  - Disorientation [Recovered/Resolved]
  - Vertigo [Recovered/Resolved]
  - Nausea [Recovered/Resolved]
  - Headache [Recovered/Resolved]
